FAERS Safety Report 8121308 (Version 4)
Quarter: 2018Q3

REPORT INFORMATION
  Report Type: Spontaneous
  Country: JP (occurrence: JP)
  Receive Date: 20110906
  Receipt Date: 20180814
  Transmission Date: 20181010
  Serious: Yes (Death)
  Sender: FDA-Public Use
  Company Number: PHHY2011JP78653

PATIENT
  Age: 91 Year
  Sex: Female

DRUGS (10)
  1. UNASYN S [Concomitant]
     Active Substance: AMPICILLIN SODIUM\SULBACTAM SODIUM
     Indication: PNEUMONIA ASPIRATION
     Dosage: 6 G, UNK
     Route: 065
     Dates: start: 20110713, end: 20110808
  2. NEOPYRIN [Concomitant]
     Dosage: 1500 ML, UNK
     Route: 065
     Dates: start: 20110805, end: 20110825
  3. SODIUM CHLORIDE. [Concomitant]
     Active Substance: SODIUM CHLORIDE
     Indication: HYPONATRAEMIA
     Dosage: 5 G, UNK
     Route: 042
  4. NEOPYRIN [Concomitant]
     Indication: NUTRITIONAL SUPPLEMENTATION
     Dosage: 1000 ML, UNK
     Route: 065
  5. EXELON PATCH [Suspect]
     Active Substance: RIVASTIGMINE
     Indication: DEMENTIA
     Dosage: 4.5 MG, QD
     Route: 062
     Dates: start: 20110720, end: 20110816
  6. EXELON PATCH [Suspect]
     Active Substance: RIVASTIGMINE
     Dosage: 9 MG, QD
     Route: 062
     Dates: start: 20110817
  7. BISOLVON [Concomitant]
     Active Substance: BROMHEXINE HYDROCHLORIDE
     Indication: PNEUMONIA ASPIRATION
     Dosage: 8 MG, UNK
     Route: 042
     Dates: start: 20110715, end: 20110830
  8. GASMOTIN [Concomitant]
     Active Substance: MOSAPRIDE CITRATE
     Indication: PROPHYLAXIS
     Dosage: 2 MG, UNK
     Route: 048
     Dates: start: 20110711, end: 20110802
  9. BFLUID [Concomitant]
     Active Substance: AMINO ACIDS\DEXTROSE\ELECTROLYTES NOS\VITAMINS
     Indication: NUTRITIONAL SUPPLEMENTATION
     Dosage: 1000 ML, UNK
     Route: 065
     Dates: start: 20110711, end: 20110804
  10. AMIGRAEN [Concomitant]
     Indication: NUTRITIONAL SUPPLEMENTATION
     Dosage: 500 ML, UNK
     Route: 065
     Dates: start: 20110826, end: 20110830

REACTIONS (9)
  - Pneumonia aspiration [Fatal]
  - Blood sodium decreased [Unknown]
  - Marasmus [Fatal]
  - White blood cell count increased [Unknown]
  - Lymphocyte count decreased [Unknown]
  - Neutrophil count increased [Unknown]
  - Respiratory arrest [Fatal]
  - Pyrexia [Unknown]
  - Blood glucose increased [Unknown]

NARRATIVE: CASE EVENT DATE: 20110729
